FAERS Safety Report 7517299-5 (Version None)
Quarter: 2011Q2

REPORT INFORMATION
  Report Type: 
  Country: None (occurrence: None)
  Receive Date: 20110601
  Receipt Date: 20110524
  Transmission Date: 20111010
  Serious: Yes (Hospitalization, Other)
  Sender: FDA-Public Use
  Company Number: TW-PFIZER INC-2011104016

PATIENT
  Age: 60 Year
  Sex: Male

DRUGS (1)
  1. VIAGRA [Suspect]
     Dosage: ONCE OR TWICE A WEEK
     Route: 048
     Dates: start: 20000101, end: 20110401

REACTIONS (3)
  - DYSPNOEA [None]
  - PERIPHERAL ISCHAEMIA [None]
  - CORONARY ARTERY DISEASE [None]
